FAERS Safety Report 18373973 (Version 2)
Quarter: 2020Q4

REPORT INFORMATION
  Report Type: Spontaneous
  Country: US (occurrence: US)
  Receive Date: 20201012
  Receipt Date: 20201013
  Transmission Date: 20210114
  Serious: No
  Sender: FDA-Public Use
  Company Number: US-PFIZER INC-2020392676

PATIENT
  Age: 80 Year
  Sex: Female
  Weight: 74.84 kg

DRUGS (3)
  1. LATANOPROST. [Suspect]
     Active Substance: LATANOPROST
     Indication: GLAUCOMA
     Dosage: UNK, 1X/DAY [AT BEDTIME] [USED IT AROUND 3-4 PM]
  2. ELIQUIS [Concomitant]
     Active Substance: APIXABAN
     Indication: ANTICOAGULANT THERAPY
     Dosage: UNK
  3. METOPROLOL TARTRATE. [Concomitant]
     Active Substance: METOPROLOL TARTRATE
     Indication: ANTICOAGULANT THERAPY
     Dosage: UNK, 2X/DAY (TWICE A DAY)

REACTIONS (9)
  - Nausea [Recovered/Resolved]
  - Eye pruritus [Unknown]
  - Malaise [Unknown]
  - Abdominal pain [Recovering/Resolving]
  - Viral infection [Unknown]
  - Vision blurred [Unknown]
  - Feeding disorder [Unknown]
  - Eye pain [Unknown]
  - Asthenia [Unknown]
